FAERS Safety Report 5897184-5 (Version None)
Quarter: 2008Q3

REPORT INFORMATION
  Report Type: 
  Country: None (occurrence: None)
  Receive Date: 20080923
  Receipt Date: 20080912
  Transmission Date: 20090109
  Serious: Yes (Other)
  Sender: FDA-Public Use
  Company Number: 2008AP002373

PATIENT
  Age: 3 Year
  Sex: Female

DRUGS (3)
  1. VALPROIC ACID SYRUP [Suspect]
  2. LAMOTRIGINE [Suspect]
  3. PHENYTOIN [Suspect]

REACTIONS (4)
  - BONE MARROW TOXICITY [None]
  - DRUG INTERACTION [None]
  - HEPATOTOXICITY [None]
  - PARAINFLUENZAE VIRUS INFECTION [None]
